FAERS Safety Report 8070665-4 (Version None)
Quarter: 2012Q1

REPORT INFORMATION
  Report Type: 
  Country: None (occurrence: None)
  Receive Date: 20120125
  Receipt Date: 20120119
  Transmission Date: 20120608
  Serious: Yes (Hospitalization, Other)
  Sender: FDA-Public Use
  Company Number: PHEH2011US008949

PATIENT
  Sex: Female

DRUGS (13)
  1. BACTRIM [Concomitant]
  2. PEPCID [Concomitant]
     Dosage: UNK UKN, UNK
  3. ELAVIL [Concomitant]
  4. IBUPROFEN [Concomitant]
  5. AMITRIPTYLINE HCL [Concomitant]
     Dosage: UNK UKN, UNK
  6. PROMETHAZINE [Concomitant]
  7. ATIVAN [Concomitant]
     Indication: CONVULSION
     Dosage: UNK UKN, UNK
  8. KETOROLAC TROMETHAMINE [Concomitant]
  9. SEROQUEL [Concomitant]
  10. TRAZODONE HCL [Concomitant]
  11. GILENYA [Suspect]
     Indication: MULTIPLE SCLEROSIS
     Dosage: 0.5 MG, QD
     Route: 048
     Dates: start: 20111102
  12. KEPPRA [Concomitant]
     Dosage: UNK UKN, UNK
     Route: 048
  13. LEXAPRO [Concomitant]
     Dosage: UNK UKN, UNK

REACTIONS (15)
  - ARTHRALGIA [None]
  - UNRESPONSIVE TO STIMULI [None]
  - FATIGUE [None]
  - DYSPNOEA [None]
  - RESPIRATORY ARREST [None]
  - AMNESIA [None]
  - HYPERTENSION [None]
  - FEELING HOT [None]
  - PAIN [None]
  - STARING [None]
  - MUSCULOSKELETAL PAIN [None]
  - PETIT MAL EPILEPSY [None]
  - LOSS OF CONSCIOUSNESS [None]
  - HYPERHIDROSIS [None]
  - LETHARGY [None]
